FAERS Safety Report 12232338 (Version 1)
Quarter: 2016Q2

REPORT INFORMATION
  Report Type: Spontaneous
  Country: FR (occurrence: FR)
  Receive Date: 20160401
  Receipt Date: 20160401
  Transmission Date: 20160815
  Serious: Yes (Hospitalization, Other)
  Sender: FDA-Public Use
  Company Number: PHHY2016FR041735

PATIENT
  Sex: Male

DRUGS (1)
  1. AFINITOR [Suspect]
     Active Substance: EVEROLIMUS
     Indication: PRODUCT USED FOR UNKNOWN INDICATION
     Dosage: 10 MG, UNK
     Route: 065
     Dates: start: 201101

REACTIONS (6)
  - Renal failure [Unknown]
  - Circulatory collapse [Unknown]
  - Sepsis [Unknown]
  - Pancreatic neuroendocrine tumour [Unknown]
  - Malaise [Unknown]
  - Nonspecific reaction [Unknown]
